FAERS Safety Report 20255189 (Version 1)
Quarter: 2021Q4

REPORT INFORMATION
  Report Type: Spontaneous
  Country: US (occurrence: US)
  Receive Date: 20211230
  Receipt Date: 20211230
  Transmission Date: 20220303
  Serious: No
  Sender: FDA-Public Use
  Company Number: US-SANOFI-00905473

PATIENT
  Sex: Male

DRUGS (1)
  1. SELSUN BLUE MOISTURIZING [Suspect]
     Active Substance: SELENIUM SULFIDE
     Dosage: UNK
     Dates: start: 2017

REACTIONS (4)
  - Scab [Unknown]
  - Alopecia [Unknown]
  - Skin exfoliation [Unknown]
  - Condition aggravated [Unknown]
